FAERS Safety Report 9006145 (Version 2)
Quarter: 2013Q1

REPORT INFORMATION
  Report Type: Spontaneous
  Country: US (occurrence: US)
  Receive Date: 20130109
  Receipt Date: 20130128
  Transmission Date: 20140127
  Serious: Yes (Other)
  Sender: FDA-Public Use
  Company Number: US-009507513-0901USA02181

PATIENT
  Age: 16 Year
  Sex: Male
  Weight: 61.24 kg

DRUGS (4)
  1. SINGULAIR [Suspect]
     Indication: SEASONAL ALLERGY
     Dosage: 10 MG, DAILY
     Route: 048
     Dates: start: 19980129, end: 20080328
  2. SINGULAIR [Suspect]
     Indication: ASTHMA
  3. ALLEGRA [Concomitant]
     Dosage: 100 MG, UNK
     Dates: start: 2000
  4. VENTOLIN (ALBUTEROL) [Concomitant]
     Route: 055
     Dates: start: 2000

REACTIONS (3)
  - Suicide attempt [Recovered/Resolved]
  - Anxiety [Recovered/Resolved]
  - Depression [Recovered/Resolved]
